FAERS Safety Report 8479550-7 (Version None)
Quarter: 2012Q2

REPORT INFORMATION
  Report Type: 
  Country: None (occurrence: None)
  Receive Date: 20120629
  Receipt Date: 20120625
  Transmission Date: 20120825
  Serious: Yes (Other)
  Sender: FDA-Public Use
  Company Number: US-PFIZER INC-2011294333

PATIENT
  Sex: Female
  Weight: 68.027 kg

DRUGS (14)
  1. EFFEXOR XR [Suspect]
     Indication: RADICULITIS
     Dosage: 150 MG, 2X/DAY
     Route: 048
     Dates: end: 20111122
  2. METFORMIN [Concomitant]
     Indication: DIABETES MELLITUS
     Dosage: 1000 MG, 2X/DAY
     Route: 048
  3. LEVOTHYROXINE [Concomitant]
     Indication: HORMONE THERAPY
     Dosage: 75 UG, 1X/DAY
     Route: 048
  4. ENALAPRIL [Concomitant]
     Indication: HYPERTENSION
     Dosage: 20 MG, 2X/DAY
     Route: 048
  5. TRAZODONE [Concomitant]
     Indication: INSOMNIA
     Dosage: 150 MG, 1X/DAY
     Route: 048
  6. GLIPIZIDE [Concomitant]
     Indication: DIABETES MELLITUS
     Dosage: 10 MG, 1X/DAY
     Route: 048
  7. VENLAFAXINE HCL [Suspect]
     Indication: RADICULITIS
     Dosage: 300 MG, FREQUENCY UNKNOWN
     Route: 048
     Dates: start: 20111122
  8. EFFEXOR XR [Suspect]
     Indication: PAIN
  9. LYRICA [Concomitant]
     Indication: PAIN
     Dosage: 100MG IN AM, 150MG IN PM
     Route: 048
  10. GEMFIBROZIL [Concomitant]
     Dosage: 600 MG, 2X/DAY
     Route: 048
  11. VENLAFAXINE HCL [Suspect]
     Indication: PAIN
  12. METOPROLOL [Concomitant]
     Indication: CARDIAC FLUTTER
  13. METOPROLOL [Concomitant]
     Indication: VENTRICULAR SEPTAL DEFECT
     Dosage: 25 MG, 2X/DAY
     Route: 048
  14. OMEPRAZOLE [Concomitant]
     Indication: ANTACID THERAPY
     Dosage: 20 MG, 1X/DAY
     Route: 048

REACTIONS (4)
  - DRUG DEPENDENCE [None]
  - PAIN [None]
  - DRUG INEFFECTIVE [None]
  - DRUG WITHDRAWAL SYNDROME [None]
